FAERS Safety Report 8976787 (Version 1)
Quarter: 2012Q4

REPORT INFORMATION
  Report Type: 
  Country: US (occurrence: US)
  Receive Date: 20121219
  Receipt Date: 20121219
  Transmission Date: 20130627
  Serious: No
  Sender: FDA-Public Use
  Company Number: US-AMGEN-USASP2012059491

PATIENT
  Sex: Female

DRUGS (3)
  1. XGEVA [Suspect]
     Indication: METASTASES TO BONE
     Dosage: UNK UNK, q6mo
  2. XGEVA [Suspect]
     Indication: BREAST CANCER METASTATIC
  3. FASLODEX [Concomitant]
     Dosage: UNK

REACTIONS (1)
  - Trigger finger [Recovered/Resolved]
